FAERS Safety Report 17631766 (Version 1)
Quarter: 2020Q2

REPORT INFORMATION
  Report Type: Spontaneous
  Country: US (occurrence: US)
  Receive Date: 20200406
  Receipt Date: 20200406
  Transmission Date: 20200713
  Serious: No
  Sender: FDA-Public Use
  Company Number: None

PATIENT
  Age: 71 Year
  Sex: Female
  Weight: 58.5 kg

DRUGS (10)
  1. CALCIUM 600MG, ORAL [Concomitant]
  2. VITAMIN D 1.25 MG, ORAL EVERY TWO WEEKS [Concomitant]
  3. VITAMIN C 500MG, ORAL [Concomitant]
     Dates: end: 20191002
  4. IBRANCE 125 MG, ORAL [Concomitant]
     Dates: start: 20190129, end: 20190715
  5. VITAMIN B COMPLEX, ORAL [Concomitant]
  6. LIBRAX 5 - 2.5 MG, ORAL IN THE MORNING [Concomitant]
  7. CALCIUM CITRATE - VITAMIN D3 315 MG - 250 MG, ORAL [Concomitant]
     Dates: end: 20191002
  8. CAPECITABINE. [Suspect]
     Active Substance: CAPECITABINE
     Indication: BREAST CANCER
     Route: 048
     Dates: start: 20191001, end: 20200406
  9. BIOTIN FORTE 3 MG, ORAL [Concomitant]
  10. HYDROCHLOROTHIAZIDE 25 MG, ORAL [Concomitant]

REACTIONS (1)
  - Disease progression [None]

NARRATIVE: CASE EVENT DATE: 20200406
